FAERS Safety Report 21008690 (Version 1)
Quarter: 2022Q2

REPORT INFORMATION
  Report Type: Spontaneous
  Country: US (occurrence: US)
  Receive Date: 20220627
  Receipt Date: 20220627
  Transmission Date: 20220720
  Serious: Yes (Hospitalization, Other)
  Sender: FDA-Public Use
  Company Number: US-ALKEM LABORATORIES LIMITED-US-ALKEM-2022-04183

PATIENT
  Age: 17 Month
  Sex: Male

DRUGS (3)
  1. MORPHINE SULFATE [Suspect]
     Active Substance: MORPHINE SULFATE
     Indication: Product used for unknown indication
     Dosage: UNK
     Route: 064
  2. OXYCODONE HYDROCHLORIDE [Suspect]
     Active Substance: OXYCODONE HYDROCHLORIDE
     Indication: Product used for unknown indication
     Dosage: UNK
     Route: 064
  3. FENTANYL [Suspect]
     Active Substance: FENTANYL
     Indication: Product used for unknown indication
     Dosage: UNK
     Route: 064

REACTIONS (9)
  - Respiratory depression [Unknown]
  - Foetal exposure during pregnancy [Unknown]
  - Agitation [Unknown]
  - Irritability [Unknown]
  - Tachycardia [Unknown]
  - Confusional state [Unknown]
  - Somnolence [Unknown]
  - Lethargy [Unknown]
  - Miosis [Unknown]
